FAERS Safety Report 23523152 (Version 1)
Quarter: 2024Q1

REPORT INFORMATION
  Report Type: Spontaneous
  Country: AU (occurrence: AU)
  Receive Date: 20240214
  Receipt Date: 20240214
  Transmission Date: 20240409
  Serious: Yes (Other)
  Sender: FDA-Public Use
  Company Number: AU-JNJFOC-20240227818

PATIENT
  Age: 34 Year
  Sex: Female

DRUGS (3)
  1. REMICADE [Suspect]
     Active Substance: INFLIXIMAB
     Indication: Crohn^s disease
     Route: 041
  2. INFLIXIMAB [Suspect]
     Active Substance: INFLIXIMAB
     Indication: Crohn^s disease
     Route: 065
     Dates: start: 20211103, end: 20220310
  3. INFLIXIMAB [Suspect]
     Active Substance: INFLIXIMAB
     Route: 065
     Dates: start: 20220413

REACTIONS (2)
  - COVID-19 [Unknown]
  - Product dose omission issue [Unknown]
